FAERS Safety Report 4504520-0 (Version None)
Quarter: 2004Q4

REPORT INFORMATION
  Report Type: 
  Country: None (occurrence: None)
  Receive Date: 20041118
  Receipt Date: 20041006
  Transmission Date: 20050328
  Serious: Yes (Other)
  Sender: FDA-Public Use
  Company Number: JP-MERCK-0410USA01819

PATIENT
  Age: 45 Year
  Sex: Male

DRUGS (1)
  1. SINGULAIR [Suspect]
     Indication: ASTHMA
     Route: 048
     Dates: start: 20040930, end: 20041002

REACTIONS (2)
  - EYE HAEMORRHAGE [None]
  - RETINAL VEIN OCCLUSION [None]
